FAERS Safety Report 9172901 (Version 2)
Quarter: 2013Q2

REPORT INFORMATION
  Report Type: Report from Study
  Country: JP (occurrence: JP)
  Receive Date: 20130319
  Receipt Date: 20130417
  Transmission Date: 20140414
  Serious: Yes (Hospitalization)
  Sender: FDA-Public Use
  Company Number: JP-B.I. PHARMACEUTICALS,INC./RIDGEFIELD-2013-BI-06903NB

PATIENT
  Age: 71 Year
  Sex: Female
  Weight: 48.5 kg

DRUGS (7)
  1. PRADAXA [Suspect]
     Indication: ATRIAL FIBRILLATION
     Dosage: 220 MG
     Route: 048
     Dates: start: 20121109, end: 20121111
  2. PRADAXA [Suspect]
     Indication: ISCHAEMIC STROKE
     Dosage: 150 MG
     Route: 048
     Dates: start: 20121115
  3. PRADAXA [Suspect]
     Indication: EMBOLISM
  4. VASOLAN [Concomitant]
     Indication: ATRIAL FIBRILLATION
     Dosage: 120 MG
     Route: 048
     Dates: start: 20121109
  5. NEXIUM [Concomitant]
     Indication: PROPHYLAXIS
     Dosage: 20 MG
     Route: 048
     Dates: start: 20121109
  6. TAMBOCOR [Concomitant]
     Indication: ATRIAL FIBRILLATION
     Dosage: 200 MG
     Route: 048
     Dates: start: 20121118
  7. MAINTATE [Concomitant]
     Indication: ATRIAL FIBRILLATION
     Dosage: 2.5 MG
     Route: 048
     Dates: start: 20121114

REACTIONS (3)
  - Cardiac tamponade [Recovered/Resolved]
  - Pericardial haemorrhage [Recovered/Resolved]
  - Hepatic function abnormal [Recovered/Resolved]
